FAERS Safety Report 11434469 (Version 1)
Quarter: 2015Q3

REPORT INFORMATION
  Report Type: Spontaneous
  Country: US (occurrence: None)
  Receive Date: 20150828
  Receipt Date: 20150828
  Transmission Date: 20151125
  Serious: Yes (Disabling)
  Sender: FDA-Public Use
  Company Number: None

PATIENT
  Age: 65 Year
  Sex: Female
  Weight: 58.97 kg

DRUGS (11)
  1. TENS UNIT [Concomitant]
  2. MILK OF MAGNESIA + FAMOTIDINE [Concomitant]
  3. SUPPS. OR HERBS. [Concomitant]
  4. FAMOTIDINE. [Concomitant]
     Active Substance: FAMOTIDINE
  5. OXYGEN. [Concomitant]
     Active Substance: OXYGEN
  6. BOTOX [Suspect]
     Active Substance: ONABOTULINUMTOXINA
     Indication: MIGRAINE
     Dosage: I DON^T KNOW?38 INJECTIONS AT ONE SITTING?EVERY 3 MONTHS ?INJECTION
     Dates: start: 20150325, end: 20150325
  7. ERGNMAR [Concomitant]
  8. MOBIC [Concomitant]
     Active Substance: MELOXICAM
  9. FLEXERIL [Concomitant]
     Active Substance: CYCLOBENZAPRINE HYDROCHLORIDE
  10. MINASTRIN 24 FE [Concomitant]
     Active Substance: ETHINYL ESTRADIOL\NORETHINDRONE ACETATE
  11. CAMBIA [Concomitant]
     Active Substance: DICLOFENAC POTASSIUM

REACTIONS (2)
  - Pain [None]
  - Muscle spasms [None]

NARRATIVE: CASE EVENT DATE: 20150325
